FAERS Safety Report 6405765-5 (Version None)
Quarter: 2009Q4

REPORT INFORMATION
  Report Type: 
  Country: None (occurrence: None)
  Receive Date: 20091019
  Receipt Date: 20091013
  Transmission Date: 20100525
  Serious: Yes (Hospitalization, Other)
  Sender: FDA-Public Use
  Company Number: US-BAYER-200915230BCC

PATIENT
  Age: 75 Year
  Sex: Male
  Weight: 73 kg

DRUGS (20)
  1. ASPIRIN [Suspect]
     Indication: HEART VALVE OPERATION
     Route: 048
     Dates: end: 20090407
  2. ASPIRIN [Suspect]
     Route: 048
     Dates: start: 20090407
  3. CLOPIDOGREL [Suspect]
     Indication: CORONARY ARTERY DISEASE
     Dosage: TOTAL DAILY DOSE: 75 MG  UNIT DOSE: 75 MG
     Route: 048
     Dates: start: 20030917, end: 20081108
  4. CLOPIDOGREL [Suspect]
     Dosage: TOTAL DAILY DOSE: 75 MG  UNIT DOSE: 75 MG
     Route: 048
     Dates: start: 20090122, end: 20090306
  5. CLOPIDOGREL [Suspect]
     Dosage: TOTAL DAILY DOSE: 75 MG  UNIT DOSE: 75 MG
     Route: 048
     Dates: start: 20090521
  6. CLOPIDOGREL [Suspect]
     Route: 065
     Dates: start: 20090301, end: 20090407
  7. METOPROLOL TARTRATE [Concomitant]
     Route: 065
  8. RAMIPRIL [Concomitant]
     Route: 065
  9. WARFARIN SODIUM [Concomitant]
     Indication: HEART VALVE REPLACEMENT
     Route: 065
  10. VYTORIN [Concomitant]
     Indication: BLOOD CHOLESTEROL INCREASED
     Route: 065
  11. AMITRIPTYLINE [Concomitant]
     Indication: DEPRESSION
     Route: 065
     Dates: start: 20030101
  12. IRON [Concomitant]
     Route: 065
  13. IRON [Concomitant]
     Route: 065
  14. ENOXAPARIN SODIUM [Concomitant]
     Route: 065
  15. CARAFATE LIQUID [Concomitant]
     Route: 065
  16. MISOPROSTOL [Concomitant]
     Dosage: TOTAL DAILY DOSE: 800 ?G  UNIT DOSE: 200 ?G
     Route: 065
  17. PINTS OF BLOOD [Concomitant]
     Route: 065
     Dates: start: 20090511
  18. PINTS OF BLOOD [Concomitant]
     Route: 065
     Dates: start: 20090527
  19. SIMVASTATIN [Concomitant]
     Indication: BLOOD CHOLESTEROL ABNORMAL
     Route: 065
     Dates: start: 20030101, end: 20060601
  20. EZETIMIBE W/ SIMVASTATIN [Concomitant]
     Indication: BLOOD CHOLESTEROL ABNORMAL
     Dosage: 10/20MG
     Route: 065
     Dates: start: 20060101

REACTIONS (15)
  - ANGINA PECTORIS [None]
  - CHEST PAIN [None]
  - DIZZINESS [None]
  - GASTRIC HAEMORRHAGE [None]
  - GASTRITIS [None]
  - GASTROINTESTINAL HAEMORRHAGE [None]
  - HAEMATOCHEZIA [None]
  - HAEMATOCRIT DECREASED [None]
  - HAEMORRHAGE [None]
  - LOSS OF CONSCIOUSNESS [None]
  - MYOCARDIAL INFARCTION [None]
  - PALLOR [None]
  - SYNCOPE [None]
  - THROMBOSIS [None]
  - ULCER HAEMORRHAGE [None]
